FAERS Safety Report 9206544 (Version 1)
Quarter: 2013Q2

REPORT INFORMATION
  Report Type: Spontaneous
  Country: ES (occurrence: ES)
  Receive Date: 20130403
  Receipt Date: 20130403
  Transmission Date: 20140414
  Serious: Yes (Death, Hospitalization, Other)
  Sender: FDA-Public Use
  Company Number: ES-PFIZER INC-2013103955

PATIENT
  Age: 74 Year
  Sex: Female

DRUGS (6)
  1. ALDACTONE [Suspect]
     Indication: OEDEMA PERIPHERAL
     Dosage: UNK
     Route: 048
     Dates: start: 20120718, end: 20120830
  2. FUROSEMIDE [Interacting]
     Indication: OEDEMA PERIPHERAL
     Dosage: UNK
     Route: 048
     Dates: start: 20120827, end: 20120904
  3. VALSARTAN HYDROCHLOROTHIAZIDE [Interacting]
     Indication: HYPERTENSION
     Dosage: 12.5MG/80MG
     Route: 048
     Dates: start: 20120718, end: 20120829
  4. PRAMIPEXOLE [Concomitant]
     Indication: RESTLESS LEGS SYNDROME
     Dosage: HALF TABLET/DAY
     Route: 048
     Dates: start: 201203, end: 20120424
  5. PRAMIPEXOLE [Concomitant]
     Dosage: 1 TABLET/DAY
     Route: 048
     Dates: start: 20120425, end: 20120605
  6. PRAMIPEXOLE [Concomitant]
     Dosage: 2 TABLETS/DAY
     Route: 048
     Dates: start: 20120606, end: 20120907

REACTIONS (5)
  - Pneumonia [Fatal]
  - Drug interaction [Recovered/Resolved]
  - Inappropriate antidiuretic hormone secretion [Recovered/Resolved]
  - Hypertensive crisis [Unknown]
  - Hyponatraemia [Recovered/Resolved]
